FAERS Safety Report 7450193-7 (Version None)
Quarter: 2011Q2

REPORT INFORMATION
  Report Type: 
  Country: None (occurrence: None)
  Receive Date: 20110422
  Receipt Date: 20110414
  Transmission Date: 20111010
  Serious: Yes (Other)
  Sender: FDA-Public Use
  Company Number: 1000020202

PATIENT
  Sex: Female

DRUGS (1)
  1. CITALOPRAM HYDROBROMIDE [Suspect]
     Indication: DEPRESSION
     Dosage: (20 MG)
     Dates: start: 20090201, end: 20110304

REACTIONS (2)
  - DRUG INEFFECTIVE [None]
  - ENDOMETRIAL CANCER [None]
